FAERS Safety Report 9626306 (Version 1)
Quarter: 2013Q4

REPORT INFORMATION
  Report Type: Spontaneous
  Country: US (occurrence: None)
  Receive Date: 20131015
  Receipt Date: 20131015
  Transmission Date: 20140711
  Serious: Yes (Hospitalization)
  Sender: FDA-Public Use
  Company Number: None

PATIENT
  Age: 50 Year
  Sex: Female
  Weight: 72.12 kg

DRUGS (7)
  1. LISINOPRIL [Suspect]
     Dosage: 1 TAB
     Route: 048
     Dates: start: 20130816, end: 20130821
  2. AUGMENTIN [Concomitant]
  3. MULTIVITAMIN [Concomitant]
  4. COQ-10 [Concomitant]
  5. FISH OIL [Concomitant]
  6. BIOTIN [Concomitant]
  7. BABY ASPIRIN [Concomitant]

REACTIONS (10)
  - Presyncope [None]
  - Blood pressure fluctuation [None]
  - Diarrhoea [None]
  - Anxiety [None]
  - Dizziness [None]
  - Menorrhagia [None]
  - Panic attack [None]
  - Sinusitis [None]
  - Tension headache [None]
  - Vision blurred [None]
